FAERS Safety Report 6716575-3 (Version None)
Quarter: 2010Q2

REPORT INFORMATION
  Report Type: 
  Country: None (occurrence: None)
  Receive Date: 20100507
  Receipt Date: 20100429
  Transmission Date: 20101027
  Serious: Yes (Hospitalization, Other)
  Sender: FDA-Public Use
  Company Number: US-ABBOTT-10P-163-0639376-00

PATIENT
  Sex: Female
  Weight: 79.45 kg

DRUGS (1)
  1. HUMIRA [Suspect]
     Indication: CROHN'S DISEASE
     Dates: start: 20080901, end: 20091201

REACTIONS (5)
  - ABDOMINAL PAIN [None]
  - COLECTOMY [None]
  - DIARRHOEA [None]
  - GASTROINTESTINAL DISORDER [None]
  - LARGE INTESTINE PERFORATION [None]
